FAERS Safety Report 25413184 (Version 1)
Quarter: 2025Q2

REPORT INFORMATION
  Report Type: Spontaneous
  Country: US (occurrence: None)
  Receive Date: 20250606
  Receipt Date: 20250606
  Transmission Date: 20250716
  Serious: Yes (Other)
  Sender: FDA-CTU
  Company Number: None

PATIENT
  Age: 70 Year
  Sex: Female
  Weight: 62.1 kg

DRUGS (6)
  1. ZYRTEC [Suspect]
     Active Substance: CETIRIZINE HYDROCHLORIDE
     Indication: Seasonal allergy
  2. VITAMIN D [Concomitant]
     Active Substance: VITAMIN D NOS
  3. CALCIUM [Concomitant]
     Active Substance: CALCIUM
  4. FISH OIL [Concomitant]
     Active Substance: FISH OIL
  5. ASPIRIN [Concomitant]
     Active Substance: ASPIRIN
  6. VITAMIN C [Concomitant]
     Active Substance: ASCORBIC ACID

REACTIONS (2)
  - Weight increased [None]
  - Pruritus [None]

NARRATIVE: CASE EVENT DATE: 20250604
